FAERS Safety Report 9112627 (Version 8)
Quarter: 2016Q3

REPORT INFORMATION
  Report Type: Report from Study
  Country: US (occurrence: US)
  Receive Date: 20130211
  Receipt Date: 20160928
  Transmission Date: 20161109
  Serious: Yes (Death, Hospitalization, Other)
  Sender: FDA-Public Use
  Company Number: US-ROCHE-775066

PATIENT

DRUGS (1)
  1. BEVACIZUMAB [Suspect]
     Active Substance: BEVACIZUMAB
     Indication: NEOVASCULAR AGE-RELATED MACULAR DEGENERATION
     Dosage: 1.25 MG IN 0.05 ML OF SOLUTION
     Route: 050

REACTIONS (22)
  - Pneumonia [Unknown]
  - Urinary tract infection [Unknown]
  - Arterial thrombosis [Unknown]
  - Myocardial infarction [Unknown]
  - Cardiac disorder [Unknown]
  - Nervous system disorder [Unknown]
  - Infection [Unknown]
  - Haemorrhage [Unknown]
  - Vomiting [Unknown]
  - Hernia [Unknown]
  - Hypertension [Unknown]
  - Pseudoendophthalmitis [Unknown]
  - Suspected transmission of an infectious agent via product [Unknown]
  - Nausea [Unknown]
  - Death [Fatal]
  - Cerebrovascular accident [Unknown]
  - Benign neoplasm [Unknown]
  - Neoplasm malignant [Unknown]
  - Endophthalmitis [Unknown]
  - Angiopathy [Fatal]
  - Gastrointestinal disorder [Unknown]
  - Venous thrombosis [Unknown]
